FAERS Safety Report 5268117-X (Version None)
Quarter: 2007Q1

REPORT INFORMATION
  Report Type: 
  Country: None (occurrence: None)
  Receive Date: 20070316
  Receipt Date: 20070316
  Transmission Date: 20070707
  Serious: Yes (Other)
  Sender: FDA-Public Use
  Company Number: None

PATIENT
  Age: 49 Year
  Sex: Male
  Weight: 151.0478 kg

DRUGS (3)
  1. PROZAC [Suspect]
     Indication: DEPRESSION
     Dosage: 30 MG 2X/DAY PO
     Route: 048
     Dates: start: 20060101, end: 20070122
  2. AMBIEN CR [Suspect]
     Indication: INSOMNIA
     Dosage: 10 MG 1X/NIGHT PO
     Route: 048
     Dates: start: 20060321, end: 20060321
  3. NYQUIL [Concomitant]

REACTIONS (3)
  - HALLUCINATION [None]
  - INFLUENZA [None]
  - SOMNOLENCE [None]
